FAERS Safety Report 22060995 (Version 2)
Quarter: 2023Q1

REPORT INFORMATION
  Report Type: Report from Study
  Country: ES (occurrence: ES)
  Receive Date: 20230303
  Receipt Date: 20230313
  Transmission Date: 20230418
  Serious: Yes (Other)
  Sender: FDA-Public Use
  Company Number: ES-SA-2023SA067302

PATIENT
  Age: 67 Year
  Sex: Male

DRUGS (4)
  1. CEMIPLIMAB [Suspect]
     Active Substance: CEMIPLIMAB
     Indication: Skin squamous cell carcinoma recurrent
     Dosage: UNK UNK, Q3W
     Dates: start: 202009
  2. CETUXIMAB [Concomitant]
     Active Substance: CETUXIMAB
     Indication: Skin squamous cell carcinoma recurrent
     Dosage: UNK
     Dates: start: 201912
  3. PACLITAXEL [Concomitant]
     Active Substance: PACLITAXEL
     Indication: Skin squamous cell carcinoma recurrent
     Dosage: UNK
     Dates: start: 201912
  4. MESALAMINE [Concomitant]
     Active Substance: MESALAMINE
     Indication: Skin squamous cell carcinoma recurrent
     Dosage: UNK
     Route: 048
     Dates: start: 202009

REACTIONS (3)
  - Panniculitis [Recovering/Resolving]
  - Pneumonitis [Unknown]
  - Myalgia [Unknown]
